FAERS Safety Report 7539480 (Version 4)
Quarter: 2014Q1

REPORT INFORMATION
  Report Type: Spontaneous
  Country: US (occurrence: US)
  Receive Date: 20100813
  Receipt Date: 20140102
  Transmission Date: 20141002
  Serious: Yes (Hospitalization, Other)
  Sender: FDA-Public Use
  Company Number: US-BAYER-201030302NA

PATIENT
  Age: 34 Year
  Sex: Female
  Weight: 86.17 kg

DRUGS (9)
  1. YAZ [Suspect]
     Indication: PRODUCT USED FOR UNKNOWN INDICATION
     Dosage: START: EARLY 2005
     Route: 048
     Dates: start: 2005
  2. YAZ [Suspect]
     Indication: PRODUCT USED FOR UNKNOWN INDICATION
     Dosage: UNK
     Dates: start: 20070313
  3. YASMIN [Suspect]
     Indication: PRODUCT USED FOR UNKNOWN INDICATION
     Dosage: START: EARLY 2005
     Route: 048
     Dates: start: 20050314, end: 200601
  4. NAPROXEN [Concomitant]
  5. SYNTHROID [Concomitant]
  6. ACCOLATE [Concomitant]
  7. FLOVENT [Concomitant]
  8. HYDROXYCHLOROQUINE [Concomitant]
  9. LEVAQUIN [Concomitant]
     Dosage: 500 MG, UNK
     Dates: start: 20050108

REACTIONS (4)
  - Gallbladder injury [Not Recovered/Not Resolved]
  - Pain [Not Recovered/Not Resolved]
  - Cholecystitis chronic [None]
  - Cholelithiasis [None]
